FAERS Safety Report 8337272-7 (Version None)
Quarter: 2012Q2

REPORT INFORMATION
  Report Type: 
  Country: None (occurrence: None)
  Receive Date: 20120504
  Receipt Date: 20120424
  Transmission Date: 20120825
  Serious: Yes (Hospitalization)
  Sender: FDA-Public Use
  Company Number: JP-JNJFOC-20120412955

PATIENT
  Age: 32 Year
  Sex: Female

DRUGS (11)
  1. REMICADE [Suspect]
     Indication: COLITIS ULCERATIVE
     Route: 042
     Dates: start: 20120301
  2. ASACOL [Concomitant]
     Route: 048
  3. PROGRAF [Concomitant]
     Route: 065
     Dates: start: 20110101
  4. IMURAN [Concomitant]
     Route: 048
     Dates: start: 20120423
  5. REMICADE [Suspect]
     Route: 042
     Dates: start: 20120105
  6. REMICADE [Suspect]
     Route: 042
     Dates: start: 20110803
  7. REMICADE [Suspect]
     Route: 042
     Dates: start: 20100712
  8. REMICADE [Suspect]
     Dosage: 8TH DOSE
     Route: 042
     Dates: start: 20111110
  9. IMURAN [Concomitant]
     Route: 048
     Dates: start: 20111208, end: 20120419
  10. REMICADE [Suspect]
     Dosage: 4TH DOSE
     Route: 042
     Dates: start: 20101019
  11. IMURAN [Concomitant]
     Route: 048
     Dates: start: 20120420, end: 20120422

REACTIONS (4)
  - VASCULITIS [None]
  - THERAPEUTIC RESPONSE DECREASED [None]
  - SKIN ULCER [None]
  - ERYTHEMA NODOSUM [None]
